FAERS Safety Report 6599998-5 (Version None)
Quarter: 2010Q1

REPORT INFORMATION
  Report Type: 
  Country: None (occurrence: None)
  Receive Date: 20100217
  Receipt Date: 20100203
  Transmission Date: 20100710
  Serious: Yes (Other)
  Sender: FDA-Public Use
  Company Number: DSM-2010-00155

PATIENT
  Age: 42 Year
  Sex: Female

DRUGS (1)
  1. OLMETEC PLUS (HYDROCHLOROTHIAZIDE, OLMESARTAN MEDOXOMIL) (HYDROCHLOROT [Suspect]
     Indication: ESSENTIAL HYPERTENSION
     Dosage: ORAL
     Route: 048
     Dates: start: 20091016, end: 20091201

REACTIONS (1)
  - DRUG EXPOSURE DURING PREGNANCY [None]
